FAERS Safety Report 5519638-3 (Version None)
Quarter: 2007Q4

REPORT INFORMATION
  Report Type: 
  Country: None (occurrence: None)
  Receive Date: 20071114
  Receipt Date: 20071030
  Transmission Date: 20080405
  Serious: Yes (Life-Threatening)
  Sender: FDA-Public Use
  Company Number: SPI200700739

PATIENT
  Age: 64 Year
  Sex: Female
  Weight: 79.4 kg

DRUGS (3)
  1. AMITIZA [Suspect]
     Dosage: 24 MCG, BID, ORAL
     Route: 048
     Dates: start: 20071011, end: 20071015
  2. ZAROXOLYN [Concomitant]
  3. METFORMIN HCL [Concomitant]

REACTIONS (5)
  - CONFUSIONAL STATE [None]
  - DIZZINESS [None]
  - EMOTIONAL DISORDER [None]
  - NO THERAPEUTIC RESPONSE [None]
  - SUICIDAL IDEATION [None]
